FAERS Safety Report 23107512 (Version 1)
Quarter: 2023Q4

REPORT INFORMATION
  Report Type: Report from Study
  Country: CL (occurrence: CL)
  Receive Date: 20231026
  Receipt Date: 20231026
  Transmission Date: 20240109
  Serious: Yes (Other)
  Sender: FDA-Public Use
  Company Number: CL-ABBVIE-5463689

PATIENT
  Sex: Female

DRUGS (10)
  1. HUMIRA [Suspect]
     Active Substance: ADALIMUMAB
     Indication: Rheumatoid arthritis
     Dosage: FORM STRENGTH- 40 MG
     Route: 058
     Dates: start: 20181029
  2. PREDNISONE [Concomitant]
     Active Substance: PREDNISONE
     Indication: Product used for unknown indication
  3. PREDNISONE [Concomitant]
     Active Substance: PREDNISONE
     Indication: Product used for unknown indication
     Dosage: DOSE INCREASED
     Dates: start: 2023
  4. OMEPRAZOLE [Concomitant]
     Active Substance: OMEPRAZOLE
     Indication: Product used for unknown indication
  5. LEFLUNOMIDE [Concomitant]
     Active Substance: LEFLUNOMIDE
     Indication: Product used for unknown indication
     Dosage: ARTRILAB
  6. VITAMIN D [Concomitant]
     Active Substance: VITAMIN D NOS
     Indication: Product used for unknown indication
  7. METHOTREXATE [Concomitant]
     Active Substance: METHOTREXATE
     Indication: Product used for unknown indication
  8. CALCIUM\CHOLECALCIFEROL [Concomitant]
     Active Substance: CALCIUM\CHOLECALCIFEROL
     Indication: Product used for unknown indication
     Dosage: ELCAL D FORTE
  9. PREGABALIN [Concomitant]
     Active Substance: PREGABALIN
     Indication: Product used for unknown indication
  10. FOLACID [Concomitant]
     Indication: Product used for unknown indication

REACTIONS (6)
  - Angina unstable [Recovering/Resolving]
  - Joint swelling [Recovering/Resolving]
  - Peripheral swelling [Not Recovered/Not Resolved]
  - Injection site pruritus [Recovering/Resolving]
  - Hypovitaminosis [Not Recovered/Not Resolved]
  - Cardiac discomfort [Not Recovered/Not Resolved]

NARRATIVE: CASE EVENT DATE: 20230101
